FAERS Safety Report 23689943 (Version 3)
Quarter: 2024Q2

REPORT INFORMATION
  Report Type: Report from Study
  Country: KR (occurrence: KR)
  Receive Date: 20240401
  Receipt Date: 20240501
  Transmission Date: 20240715
  Serious: Yes (Life-Threatening, Hospitalization)
  Sender: FDA-Public Use
  Company Number: KR-PFIZER INC-PV202400041035

PATIENT
  Age: 74 Year
  Sex: Female
  Weight: 38.8 kg

DRUGS (18)
  1. AVIBACTAM SODIUM\CEFTAZIDIME [Suspect]
     Active Substance: AVIBACTAM SODIUM\CEFTAZIDIME
     Indication: Product used for unknown indication
     Dosage: TIME INTERVAL: 0.33333333 DAYS: 2.5 VIAL, 3X PER DAY
     Route: 065
     Dates: start: 20240317, end: 20240325
  2. AVIBACTAM SODIUM\CEFTAZIDIME [Suspect]
     Active Substance: AVIBACTAM SODIUM\CEFTAZIDIME
     Indication: Product used for unknown indication
     Route: 065
     Dates: start: 202403
  3. VALPROATE SODIUM [Concomitant]
     Active Substance: VALPROATE SODIUM
     Indication: Product used for unknown indication
     Route: 048
     Dates: start: 20240214
  4. TEICONIN [Concomitant]
     Indication: Infection
     Route: 042
     Dates: start: 20240219
  5. CHOLINE ALFOSCERATE [Concomitant]
     Active Substance: CHOLINE ALFOSCERATE
     Indication: Product used for unknown indication
     Route: 048
     Dates: start: 20240221
  6. Cadil [Concomitant]
     Indication: Product used for unknown indication
     Route: 048
     Dates: start: 20240227
  7. ZEMIGLO [Concomitant]
     Indication: Product used for unknown indication
     Route: 048
     Dates: start: 20240223
  8. Colis [Concomitant]
     Indication: Infection
     Route: 042
     Dates: start: 20240303
  9. SYNTHROID [Concomitant]
     Active Substance: LEVOTHYROXINE SODIUM
     Indication: Product used for unknown indication
     Route: 048
     Dates: start: 20240209
  10. ELIQUIS [Concomitant]
     Active Substance: APIXABAN
     Indication: Product used for unknown indication
     Route: 048
     Dates: start: 20240305
  11. LINAGLIPTIN [Concomitant]
     Active Substance: LINAGLIPTIN
     Indication: Product used for unknown indication
     Route: 048
     Dates: start: 20240216
  12. AMLODIPINE [Concomitant]
     Active Substance: AMLODIPINE BESYLATE
     Indication: Product used for unknown indication
     Route: 048
     Dates: start: 20240222
  13. Q pam [Concomitant]
     Indication: Product used for unknown indication
     Route: 048
     Dates: start: 20240208
  14. PHENYTOIN [Concomitant]
     Active Substance: PHENYTOIN
     Indication: Product used for unknown indication
     Route: 048
     Dates: start: 20240312
  15. LACOSAMIDE [Concomitant]
     Active Substance: LACOSAMIDE
     Indication: Product used for unknown indication
     Route: 048
     Dates: start: 20240311
  16. FYCOMPA [Concomitant]
     Active Substance: PERAMPANEL
     Indication: Product used for unknown indication
     Route: 048
     Dates: start: 20240213
  17. FYCOMPA [Concomitant]
     Active Substance: PERAMPANEL
     Indication: Product used for unknown indication
     Route: 048
     Dates: start: 20240213
  18. KANARB [Concomitant]
     Indication: Product used for unknown indication
     Route: 048
     Dates: start: 20240222

REACTIONS (1)
  - Septic shock [Recovered/Resolved]

NARRATIVE: CASE EVENT DATE: 20240324
